FAERS Safety Report 14756269 (Version 1)
Quarter: 2018Q2

REPORT INFORMATION
  Report Type: Spontaneous
  Country: US (occurrence: US)
  Receive Date: 20180413
  Receipt Date: 20180413
  Transmission Date: 20180711
  Serious: Yes (Other)
  Sender: FDA-Public Use
  Company Number: US-BAYER-2018-069161

PATIENT
  Age: 36 Year
  Sex: Male

DRUGS (4)
  1. DIPYRIDAMOLE. [Suspect]
     Active Substance: DIPYRIDAMOLE
     Indication: BLOOD LACTATE DEHYDROGENASE INCREASED
     Dosage: 75 MG, TID
  2. RETINOIC ACID [Suspect]
     Active Substance: TRETINOIN
     Indication: ACUTE PROMYELOCYTIC LEUKAEMIA
     Dosage: UNK
  3. WARFARIN [Suspect]
     Active Substance: WARFARIN
     Indication: BLOOD LACTATE DEHYDROGENASE INCREASED
     Dosage: UNK
  4. ACETYLSALICYLIC ACID (} 100 MG) [Suspect]
     Active Substance: ASPIRIN
     Indication: BLOOD LACTATE DEHYDROGENASE INCREASED
     Dosage: 325 MG

REACTIONS (6)
  - Disseminated intravascular coagulation [None]
  - Off label use [None]
  - Drug administration error [None]
  - Subdural haematoma [None]
  - Labelled drug-drug interaction medication error [None]
  - Acute promyelocytic leukaemia differentiation syndrome [None]
